FAERS Safety Report 4862504-7 (Version None)
Quarter: 2005Q4

REPORT INFORMATION
  Report Type: 
  Country: None (occurrence: None)
  Receive Date: 20051221
  Receipt Date: 20051214
  Transmission Date: 20060501
  Serious: Yes (Other)
  Sender: FDA-Public Use
  Company Number: GB-AVENTIS-200521092GDDC

PATIENT
  Age: 40 Year
  Sex: Female
  Weight: 55 kg

DRUGS (3)
  1. METRONIDAZOLE [Suspect]
     Indication: TOOTH INFECTION
     Route: 048
     Dates: start: 20051108, end: 20051111
  2. AMOXICILLIN [Suspect]
     Indication: TOOTH INFECTION
     Route: 048
     Dates: start: 20051108, end: 20051111
  3. SERTRALINE HCL [Concomitant]
     Indication: DEPRESSION
     Route: 048

REACTIONS (3)
  - ABDOMINAL PAIN [None]
  - DIARRHOEA HAEMORRHAGIC [None]
  - VOMITING [None]
